FAERS Safety Report 9470729 (Version 2)
Quarter: 2013Q3

REPORT INFORMATION
  Report Type: Spontaneous
  Country: US (occurrence: US)
  Receive Date: 20130822
  Receipt Date: 20130822
  Transmission Date: 20140515
  Serious: Yes (Hospitalization)
  Sender: FDA-Public Use
  Company Number: US-SANOFI-AVENTIS-2013SA042208

PATIENT
  Age: 30 Year
  Sex: Female
  Weight: 82.4 kg

DRUGS (13)
  1. AFLIBERCEPT [Suspect]
     Indication: COLON CANCER METASTATIC
     Route: 042
     Dates: start: 20130307, end: 20130307
  2. AFLIBERCEPT [Suspect]
     Indication: COLON CANCER METASTATIC
     Route: 042
     Dates: start: 20130425, end: 20130425
  3. OXALIPLATIN [Suspect]
     Indication: COLON CANCER METASTATIC
     Route: 042
     Dates: start: 20130404
  4. 5-FU [Suspect]
     Dates: start: 20130404
  5. 5-FU [Suspect]
     Route: 042
     Dates: start: 20130406
  6. AMLODIPINE [Concomitant]
  7. ENOXAPARIN [Concomitant]
  8. ALPRAZOLAM [Concomitant]
     Indication: DEPRESSION
     Dosage: THRICE AS NEEDED
     Dates: start: 20130321
  9. CITALOPRAM [Concomitant]
     Indication: DEPRESSION
     Dates: start: 20130321
  10. ZOLPIDEM [Concomitant]
  11. FENTANYL [Concomitant]
     Indication: PAIN
     Dates: start: 20130509
  12. OXYCODONE [Concomitant]
     Indication: PAIN
     Dates: start: 20130509
  13. ACETAMINOPHEN W/OXYCODONE [Concomitant]
     Indication: PAIN
     Dosage: 5-325 MG EVERY 4 HR PRN
     Dates: start: 20130301, end: 20130404

REACTIONS (2)
  - Abdominal pain upper [Recovered/Resolved]
  - Nausea [Recovered/Resolved]
